FAERS Safety Report 7557391-2 (Version None)
Quarter: 2011Q2

REPORT INFORMATION
  Report Type: 
  Country: None (occurrence: None)
  Receive Date: 20110620
  Receipt Date: 20110610
  Transmission Date: 20111010
  Serious: Yes (Disabling, Other)
  Sender: FDA-Public Use
  Company Number: DE-PURDUE-DEU_2007_0003534

PATIENT
  Sex: Male

DRUGS (4)
  1. KATADOLON                          /00890102/ [Concomitant]
  2. SYNEUDON [Concomitant]
  3. OXYCODONE HCL [Suspect]
     Indication: BACK PAIN
     Dosage: 10 MG, TID
     Route: 048
     Dates: start: 20051101, end: 20061001
  4. METOPROLOL SUCCINATE [Concomitant]

REACTIONS (5)
  - NEURITIS [None]
  - TOOTH LOSS [None]
  - BONE ATROPHY [None]
  - DENTAL CARIES [None]
  - GINGIVITIS [None]
